FAERS Safety Report 8567531-4 (Version None)
Quarter: 2012Q3

REPORT INFORMATION
  Report Type: 
  Country: None (occurrence: None)
  Receive Date: 20120803
  Receipt Date: 20120801
  Transmission Date: 20120928
  Serious: Yes (Death, Hospitalization)
  Sender: FDA-Public Use
  Company Number: PHHY2012US066291

PATIENT
  Age: 67 Year
  Sex: Male

DRUGS (9)
  1. HEPARIN [Suspect]
     Route: 040
  2. LISINOPRIL [Concomitant]
  3. CLOPIDOGREL [Suspect]
     Indication: ANTIPLATELET THERAPY
  4. TIROFIBRAN [Suspect]
  5. ALTEPLASE [Suspect]
     Dosage: 90 MG, UNK
     Route: 042
  6. INSULIN [Concomitant]
  7. GEMFIBROZIL [Concomitant]
  8. ACETYLSALICYLIC ACID SRT [Suspect]
     Indication: ANTIPLATELET THERAPY
  9. TIROFIBRAN [Suspect]
     Route: 040

REACTIONS (6)
  - HAEMORRHAGIC TRANSFORMATION STROKE [None]
  - UNRESPONSIVE TO STIMULI [None]
  - CEREBRAL HAEMORRHAGE [None]
  - HEMIPARESIS [None]
  - INTRAVENTRICULAR HAEMORRHAGE [None]
  - APHASIA [None]
